FAERS Safety Report 23859337 (Version 1)
Quarter: 2024Q2

REPORT INFORMATION
  Report Type: Spontaneous
  Country: JP (occurrence: JP)
  Receive Date: 20240515
  Receipt Date: 20240515
  Transmission Date: 20240716
  Serious: Yes (Hospitalization)
  Sender: FDA-Public Use
  Company Number: JP-Eisai-EC-2024-165287

PATIENT
  Age: 66 Year
  Sex: Male

DRUGS (2)
  1. LEMBOREXANT [Suspect]
     Active Substance: LEMBOREXANT
     Indication: Insomnia
     Dosage: THE PATIENT HAD TAKEN LEMBOREXANT (DOSE AND FREQUENCY UNKNOWN) THREE OR FOUR TIMES 2 YEARS BEFORE CU
     Route: 048
  2. LEMBOREXANT [Suspect]
     Active Substance: LEMBOREXANT
     Dosage: DOSE AND FREQUENCY UNKNOWN.
     Route: 048

REACTIONS (1)
  - Interstitial lung disease [Recovering/Resolving]
